FAERS Safety Report 13286460 (Version 1)
Quarter: 2017Q1

REPORT INFORMATION
  Report Type: Spontaneous
  Country: US (occurrence: US)
  Receive Date: 20170301
  Receipt Date: 20170301
  Transmission Date: 20170428
  Serious: Yes (Other)
  Sender: FDA-Public Use
  Company Number: US-BAUSCH-BL-2016-014314

PATIENT
  Sex: Female
  Weight: 113.5 kg

DRUGS (2)
  1. PRENATAL VITAMIN [Concomitant]
     Active Substance: VITAMINS
     Indication: PRODUCT USED FOR UNKNOWN INDICATION
  2. ACNEFREE SENSITIVE 24 HOUR ACNE CLEARING SYSTEM [Suspect]
     Active Substance: BENZOYL PEROXIDE\SALICYLIC ACID
     Indication: ACNE
     Route: 061
     Dates: start: 200902

REACTIONS (5)
  - Cholecystectomy [Unknown]
  - Paraesthesia [Unknown]
  - Product physical consistency issue [Unknown]
  - Exposure during pregnancy [Unknown]
  - Drug ineffective [Unknown]

NARRATIVE: CASE EVENT DATE: 2010
